FAERS Safety Report 12613205 (Version 2)
Quarter: 2016Q4

REPORT INFORMATION
  Report Type: Spontaneous
  Country: US (occurrence: US)
  Receive Date: 20160802
  Receipt Date: 20161025
  Transmission Date: 20170207
  Serious: Yes (Hospitalization, Other)
  Sender: FDA-Public Use
  Company Number: US-RAPTOR-RAP-001113-2016

PATIENT
  Sex: Female
  Weight: 46.26 kg

DRUGS (1)
  1. PROCYSBI DELAYED-RELEASE [Suspect]
     Active Substance: CYSTEAMINE BITARTRATE
     Indication: CYSTINOSIS
     Dosage: 900 MG, EVERY 12 HOURS
     Route: 048
     Dates: start: 20150318

REACTIONS (4)
  - Renal failure [Recovered/Resolved]
  - Stress cardiomyopathy [Recovered/Resolved]
  - Renal disorder [Unknown]
  - Hydronephrosis [Recovered/Resolved]
